FAERS Safety Report 8497350-9 (Version None)
Quarter: 2012Q3

REPORT INFORMATION
  Report Type: 
  Country: None (occurrence: None)
  Receive Date: 20120709
  Receipt Date: 20120611
  Transmission Date: 20120928
  Serious: No
  Sender: FDA-Public Use
  Company Number: US-AMGEN-USASP2012036521

PATIENT
  Age: 17 Year
  Sex: Female

DRUGS (1)
  1. ENBREL [Suspect]
     Indication: PSORIASIS
     Dosage: 50 MG, Q2WK

REACTIONS (5)
  - LYMPHADENOPATHY [None]
  - BACTERIAL INFECTION [None]
  - INJECTION SITE RASH [None]
  - INJECTION SITE PRURITUS [None]
  - SINUSITIS [None]
